FAERS Safety Report 9800037 (Version 3)
Quarter: 2015Q3

REPORT INFORMATION
  Report Type: Spontaneous
  Country: US (occurrence: US)
  Receive Date: 20140106
  Receipt Date: 20150806
  Transmission Date: 20151125
  Serious: Yes (Hospitalization)
  Sender: FDA-Public Use
  Company Number: US-GILEAD-2010-0030963

PATIENT
  Age: 40 Year
  Sex: Female

DRUGS (9)
  1. LETAIRIS [Suspect]
     Active Substance: AMBRISENTAN
     Indication: PULMONARY ARTERIAL HYPERTENSION
     Route: 048
  2. CITALOPRAM [Concomitant]
     Active Substance: CITALOPRAM HYDROBROMIDE
  3. DOCUSATE [Concomitant]
     Active Substance: DOCUSATE
  4. ATRIPLA [Concomitant]
     Active Substance: EFAVIRENZ\EMTRICITABINE\TENOFOVIR DISOPROXIL FUMARATE
  5. DILTIAZEM [Concomitant]
     Active Substance: DILTIAZEM
  6. PREVACID [Concomitant]
     Active Substance: LANSOPRAZOLE
  7. REMODULIN [Concomitant]
     Active Substance: TREPROSTINIL
  8. FUROSEMIDE. [Concomitant]
     Active Substance: FUROSEMIDE
  9. SPIRONOLACT [Concomitant]

REACTIONS (1)
  - Oedema [Not Recovered/Not Resolved]

NARRATIVE: CASE EVENT DATE: 201007
